FAERS Safety Report 4605962-5 (Version None)
Quarter: 2005Q1

REPORT INFORMATION
  Report Type: 
  Country: None (occurrence: None)
  Receive Date: 20050311
  Receipt Date: 20040212
  Transmission Date: 20050727
  Serious: Yes (Hospitalization)
  Sender: FDA-Public Use
  Company Number: JP-GLAXOSMITHKLINE-B0323306A

PATIENT
  Age: 66 Year
  Sex: Male
  Weight: 63 kg

DRUGS (9)
  1. VALTREX [Suspect]
     Indication: HERPES ZOSTER
     Dosage: 1000MG THREE TIMES PER DAY
     Route: 048
     Dates: start: 20040208, end: 20040210
  2. ZYLORIC [Concomitant]
     Dosage: 200MG PER DAY
     Route: 048
     Dates: start: 20040217
  3. PRAVASTATIN [Concomitant]
     Dosage: 5MG PER DAY
     Route: 048
     Dates: start: 20040217
  4. FUROSEMIDE [Concomitant]
     Dosage: 40MG PER DAY
     Route: 048
     Dates: start: 20040217
  5. AMLODIPINE [Concomitant]
     Dosage: 5MG PER DAY
     Route: 048
     Dates: start: 20040217
  6. CALCIUM CARBONATE [Concomitant]
     Dosage: 3000MG PER DAY
     Route: 048
     Dates: start: 20040217
  7. MECOBALAMIN [Concomitant]
     Dosage: 1500MCG PER DAY
     Route: 048
     Dates: start: 20040217
  8. ADENOSINE TRIPHOSPHATE DISODIUM [Concomitant]
     Dosage: 300MG PER DAY
     Route: 048
     Dates: start: 20040217
  9. PREDNISOLONE [Concomitant]
     Route: 048
     Dates: start: 20020217

REACTIONS (6)
  - COORDINATION ABNORMAL [None]
  - DEPRESSED LEVEL OF CONSCIOUSNESS [None]
  - ENCEPHALOPATHY [None]
  - NAUSEA [None]
  - OVERDOSE [None]
  - VOMITING [None]
